FAERS Safety Report 19924538 (Version 1)
Quarter: 2021Q4

REPORT INFORMATION
  Report Type: Spontaneous
  Country: None (occurrence: TR)
  Receive Date: 20211006
  Receipt Date: 20211006
  Transmission Date: 20220303
  Serious: Yes (Death, Hospitalization)
  Sender: FDA-Public Use
  Company Number: TR-OXFORD PHARMACEUTICALS, LLC-2120246

PATIENT
  Age: 3 Month
  Weight: 4.4 kg

DRUGS (2)
  1. CAPTOPRIL [Suspect]
     Active Substance: CAPTOPRIL
     Indication: Ventricular septal defect
  2. FUROSEMIDE [Suspect]
     Active Substance: FUROSEMIDE
     Route: 014

REACTIONS (5)
  - Multisystem inflammatory syndrome in children [Fatal]
  - Acute kidney injury [Fatal]
  - Dehydration [Fatal]
  - Diarrhoea [Fatal]
  - COVID-19 [Fatal]
